FAERS Safety Report 4688409-2 (Version None)
Quarter: 2005Q2

REPORT INFORMATION
  Report Type: 
  Country: None (occurrence: None)
  Receive Date: 20050610
  Receipt Date: 20050610
  Transmission Date: 20051028
  Serious: Yes (Other)
  Sender: FDA-Public Use
  Company Number: None

PATIENT
  Age: 53 Year
  Sex: Male
  Weight: 81.6475 kg

DRUGS (2)
  1. LEXAPRO [Suspect]
     Indication: ANGER
     Dosage: 1     DAY    ORAL
     Route: 048
     Dates: start: 20030801, end: 20050430
  2. LEXAPRO [Suspect]
     Indication: PANIC DISORDER
     Dosage: 1     DAY    ORAL
     Route: 048
     Dates: start: 20030801, end: 20050430

REACTIONS (2)
  - NECK PAIN [None]
  - PAIN IN EXTREMITY [None]
